FAERS Safety Report 5652755-6 (Version None)
Quarter: 2008Q1

REPORT INFORMATION
  Report Type: 
  Country: None (occurrence: None)
  Receive Date: 20080131
  Receipt Date: 20071019
  Transmission Date: 20080703
  Serious: No
  Sender: FDA-Public Use
  Company Number: US200710005243

PATIENT
  Age: 64 Year
  Sex: Male

DRUGS (3)
  1. BYETTA [Suspect]
     Indication: TYPE 2 DIABETES MELLITUS
     Dosage: 10 UG, 2/D, SUBCUTANEOUS
     Route: 058
  2. GLUCOPHAGE /USA/ (METFORMIN HYDROCHLORIDE) TABLET [Concomitant]
  3. GLUCOTROL XL (GLIPIZIDE) TABLET [Concomitant]

REACTIONS (1)
  - BLOOD GLUCOSE INCREASED [None]
